FAERS Safety Report 17152294 (Version 1)
Quarter: 2019Q4

REPORT INFORMATION
  Report Type: Spontaneous
  Country: NL (occurrence: NL)
  Receive Date: 20191213
  Receipt Date: 20191213
  Transmission Date: 20200122
  Serious: Yes (Death)
  Sender: FDA-Public Use
  Company Number: NL-MYLANLABS-2019M1122432

PATIENT
  Age: 17 Year
  Sex: Male
  Weight: 51 kg

DRUGS (12)
  1. PREGABALIN. [Suspect]
     Active Substance: PREGABALIN
     Indication: PAIN
     Dosage: 2X PER DAG 25 MG
     Route: 048
     Dates: start: 20190514, end: 20190531
  2. FYTOMENADION [Concomitant]
     Dosage: 1X PER DAG 10 MG
  3. PENTACARINAT [Suspect]
     Active Substance: PENTAMIDINE ISETHIONATE
     Indication: INFECTION PROPHYLAXIS
     Dosage: 1X PER MAAND 200 MG (4 MG/KG)
     Route: 042
     Dates: start: 20190409, end: 20190530
  4. RANITIDINE. [Suspect]
     Active Substance: RANITIDINE
     Indication: PROPHYLAXIS AGAINST GASTROINTESTINAL ULCER
     Dosage: 2X PER DAG 150 MG
     Route: 048
     Dates: start: 20190520, end: 20190529
  5. PREDNISOLON                        /00016201/ [Concomitant]
     Active Substance: PREDNISOLONE
     Dosage: 3X PER DAG 10 MG
  6. VALACICLOVIR [Concomitant]
     Active Substance: VALACYCLOVIR HYDROCHLORIDE
     Dosage: 2X PER DAG 500MG
  7. FOSAPREPITANT [Concomitant]
     Active Substance: FOSAPREPITANT
     Dosage: 1X PER DAG 80 MG
  8. CIPROFLOXACINE                     /00697201/ [Suspect]
     Active Substance: CIPROFLOXACIN
     Indication: DEVICE RELATED INFECTION
     Dosage: 3X PER DAG 400 MG
     Route: 042
     Dates: start: 20190521, end: 20190530
  9. ONDANSETRON [Concomitant]
     Active Substance: ONDANSETRON
     Dosage: ZN 3X PER DAG 6 MG
  10. MAGNESIUMSULFAAT [Concomitant]
     Dosage: 3X PER DAG 1000 MG
  11. PROGRAFT [Suspect]
     Active Substance: TACROLIMUS
     Indication: GRAFT VERSUS HOST DISEASE
     Dosage: 2X PER DAG 5 MG
     Route: 048
     Dates: start: 20190420, end: 20190530
  12. LORAZEPAM. [Concomitant]
     Active Substance: LORAZEPAM
     Dosage: ZN 3X PER DAG 0,5 MG

REACTIONS (1)
  - Pancreatitis acute [Fatal]

NARRATIVE: CASE EVENT DATE: 20190529
